FAERS Safety Report 6479786-0 (Version None)
Quarter: 2009Q4

REPORT INFORMATION
  Report Type: 
  Country: None (occurrence: None)
  Receive Date: 20091208
  Receipt Date: 20091204
  Transmission Date: 20100525
  Serious: Yes (Death, Hospitalization)
  Sender: FDA-Public Use
  Company Number: PHEH2009US16002

PATIENT
  Sex: Male

DRUGS (2)
  1. EXJADE [Suspect]
     Indication: SICKLE CELL ANAEMIA
     Dosage: 1500 MG DAILY
     Route: 048
     Dates: start: 20060220, end: 20090501
  2. EXJADE [Suspect]
     Indication: IRON OVERLOAD

REACTIONS (2)
  - DEATH [None]
  - DISEASE PROGRESSION [None]
